FAERS Safety Report 15318296 (Version 1)
Quarter: 2018Q3

REPORT INFORMATION
  Report Type: Spontaneous
  Country: US (occurrence: US)
  Receive Date: 20180825
  Receipt Date: 20180825
  Transmission Date: 20181010
  Serious: No
  Sender: FDA-Public Use
  Company Number: US-009507513-1808USA007962

PATIENT
  Sex: Female
  Weight: 54.43 kg

DRUGS (11)
  1. SUTENT [Concomitant]
     Active Substance: SUNITINIB MALATE
     Dosage: 28DAYS ON/14 DAYS OFF
     Dates: start: 20180629, end: 20180719
  2. MIRALAX [Concomitant]
     Active Substance: POLYETHYLENE GLYCOL 3350
  3. CYANOCOBALAMIN. [Concomitant]
     Active Substance: CYANOCOBALAMIN
  4. VITAMIN B (UNSPECIFIED) [Concomitant]
     Active Substance: VITAMIN B
  5. FERROUS SULFATE. [Concomitant]
     Active Substance: FERROUS SULFATE
  6. AMLODIPINE [Concomitant]
     Active Substance: AMLODIPINE BESYLATE
  7. NORVASC [Suspect]
     Active Substance: AMLODIPINE BESYLATE
     Indication: BLOOD PRESSURE INCREASED
     Dosage: 5 MG, IN THE EVENING
     Dates: start: 201807
  8. VITAMIN D [Concomitant]
     Active Substance: CHOLECALCIFEROL
  9. PRINIVIL [Suspect]
     Active Substance: LISINOPRIL
     Indication: HYPERTENSION
     Dosage: 10 MG, UNK
     Dates: start: 201807, end: 201807
  10. PRINIVIL [Suspect]
     Active Substance: LISINOPRIL
     Dosage: 20 MG, IN THE MORNING
     Dates: start: 201807
  11. ZOFRAN [Concomitant]
     Active Substance: ONDANSETRON HYDROCHLORIDE

REACTIONS (11)
  - Drug ineffective [Unknown]
  - Weight decreased [Unknown]
  - White blood cell count decreased [Unknown]
  - Diarrhoea [Unknown]
  - Oral mucosal blistering [Unknown]
  - Gastroenteritis viral [Unknown]
  - Oral pain [Unknown]
  - Platelet count decreased [Unknown]
  - Dysgeusia [Unknown]
  - Eating disorder [Unknown]
  - Vomiting [Unknown]

NARRATIVE: CASE EVENT DATE: 2018
